FAERS Safety Report 6111790-4 (Version None)
Quarter: 2009Q1

REPORT INFORMATION
  Report Type: 
  Country: None (occurrence: None)
  Receive Date: 20090311
  Receipt Date: 20090303
  Transmission Date: 20090719
  Serious: Yes (Hospitalization, Other)
  Sender: FDA-Public Use
  Company Number: CZ-ABBOTT-08P-217-0434966-00

PATIENT
  Sex: Female
  Weight: 73.2 kg

DRUGS (15)
  1. HUMIRA [Suspect]
     Indication: RHEUMATOID ARTHRITIS
     Route: 058
     Dates: start: 20041020
  2. HUMIRA [Suspect]
     Route: 058
  3. MEDROL [Concomitant]
     Indication: DRUG USE FOR UNKNOWN INDICATION
  4. OMEPRAZOLE [Concomitant]
     Indication: DRUG USE FOR UNKNOWN INDICATION
  5. CELEBREX [Concomitant]
     Indication: DRUG USE FOR UNKNOWN INDICATION
  6. TENAXUM [Concomitant]
     Indication: DRUG USE FOR UNKNOWN INDICATION
  7. TENORETIC 100 [Concomitant]
     Indication: DRUG USE FOR UNKNOWN INDICATION
  8. TORVACARD [Concomitant]
     Indication: DRUG USE FOR UNKNOWN INDICATION
  9. DETRALEX [Concomitant]
     Indication: DRUG USE FOR UNKNOWN INDICATION
  10. TRAMUNDIN [Concomitant]
     Indication: DRUG USE FOR UNKNOWN INDICATION
  11. HEPARIN [Concomitant]
     Indication: DRUG USE FOR UNKNOWN INDICATION
  12. CALCIFEROL FORTE [Concomitant]
     Indication: DRUG USE FOR UNKNOWN INDICATION
     Route: 030
  13. MIACALCIN [Concomitant]
     Indication: DRUG USE FOR UNKNOWN INDICATION
  14. LETROX [Concomitant]
     Indication: DRUG USE FOR UNKNOWN INDICATION
  15. ANALGESICS [Concomitant]
     Indication: DRUG USE FOR UNKNOWN INDICATION

REACTIONS (13)
  - CERVICAL MYELOPATHY [None]
  - DYSPHAGIA [None]
  - HYPOAESTHESIA [None]
  - IMPAIRED WORK ABILITY [None]
  - INTERVERTEBRAL DISC COMPRESSION [None]
  - INTERVERTEBRAL DISC DISORDER [None]
  - INTERVERTEBRAL DISC DISPLACEMENT [None]
  - INTERVERTEBRAL DISC PROTRUSION [None]
  - INTERVERTEBRAL DISC SPACE NARROWING [None]
  - KNEE ARTHROPLASTY [None]
  - NECK PAIN [None]
  - PARAESTHESIA [None]
  - SPONDYLOLISTHESIS [None]
